FAERS Safety Report 6975842-9 (Version None)
Quarter: 2010Q3

REPORT INFORMATION
  Report Type: 
  Country: None (occurrence: None)
  Receive Date: 20100910
  Receipt Date: 20090413
  Transmission Date: 20110219
  Serious: No
  Sender: FDA-Public Use
  Company Number: US-WYE-H08943309

PATIENT
  Sex: Female

DRUGS (5)
  1. PRISTIQ [Suspect]
     Indication: DEPRESSION
     Route: 048
     Dates: start: 20081001, end: 20090411
  2. PRISTIQ [Suspect]
     Indication: PAIN
  3. OXYCODONE HCL [Concomitant]
  4. DIFLUCAN [Concomitant]
  5. ATIVAN [Concomitant]

REACTIONS (6)
  - CRYING [None]
  - DIARRHOEA [None]
  - DRUG WITHDRAWAL SYNDROME [None]
  - HYPERHIDROSIS [None]
  - IRRITABILITY [None]
  - NAUSEA [None]
